FAERS Safety Report 9251394 (Version 2)
Quarter: 2013Q2

REPORT INFORMATION
  Report Type: Spontaneous
  Country: BR (occurrence: BR)
  Receive Date: 20130424
  Receipt Date: 20130503
  Transmission Date: 20140414
  Serious: Yes (Other)
  Sender: FDA-Public Use
  Company Number: BR-PFIZER INC-2013124767

PATIENT
  Age: 20 Year
  Sex: Male

DRUGS (4)
  1. FRADEMICINA [Suspect]
     Indication: RHEUMATIC FEVER
     Dosage: UNK
     Dates: start: 20130415, end: 20130419
  2. NIMESULIDE [Concomitant]
     Indication: OROPHARYNGEAL PAIN
     Dosage: UNK
     Dates: end: 20130419
  3. CARBOCISTEINE [Concomitant]
     Indication: COUGH
     Dosage: UNK
     Dates: end: 20130419
  4. AAS [Concomitant]
     Indication: BLOOD DISORDER
     Dosage: UNK
     Dates: start: 20130416, end: 20130419

REACTIONS (4)
  - Haematochezia [Recovered/Resolved]
  - Kidney infection [Unknown]
  - Diarrhoea [Recovered/Resolved]
  - Haematuria [Recovered/Resolved]
